FAERS Safety Report 26019488 (Version 1)
Quarter: 2025Q4

REPORT INFORMATION
  Report Type: Spontaneous
  Country: EU (occurrence: EU)
  Receive Date: 20251110
  Receipt Date: 20251110
  Transmission Date: 20260117
  Serious: Yes (Hospitalization, Other)
  Sender: BAXTER
  Company Number: None

PATIENT
  Age: 45 Year
  Sex: Male

DRUGS (3)
  1. PROPOFOL [Suspect]
     Active Substance: PROPOFOL
     Indication: Anaesthesia
     Dosage: UNK
     Route: 042
     Dates: start: 20250826
  2. INFLIXIMAB [Suspect]
     Active Substance: INFLIXIMAB
     Indication: Crohn^s disease
     Dosage: 5 MG/KG, EVERY 6 WK, DOSE FORM: POWDER FOR SOLUTION TO BE DILUTED FOR SOLUTION FOR INFUSION
     Route: 058
  3. KETOPROFEN [Suspect]
     Active Substance: KETOPROFEN
     Indication: Perioperative analgesia
     Dosage: 100 MG
     Route: 048
     Dates: start: 20250826

REACTIONS (1)
  - Pancreatitis acute [Recovered/Resolved]

NARRATIVE: CASE EVENT DATE: 20250826
